FAERS Safety Report 25399263 (Version 4)
Quarter: 2025Q4

REPORT INFORMATION
  Report Type: Spontaneous
  Country: US (occurrence: None)
  Receive Date: 20250605
  Receipt Date: 20251113
  Transmission Date: 20260118
  Serious: Yes (Hospitalization, Other)
  Sender: UCB
  Company Number: US-UCBSA-2025020701

PATIENT
  Age: 68 Year

DRUGS (1)
  1. BIMZELX [Suspect]
     Active Substance: BIMEKIZUMAB-BKZX
     Indication: Psoriatic arthropathy
     Dosage: 320 MILLIGRAM, EV 4 WEEKS

REACTIONS (6)
  - Hospitalisation [Unknown]
  - Spinal operation [Unknown]
  - Nasal congestion [Unknown]
  - Hypersensitivity [Unknown]
  - Off label use [Unknown]
  - Product dose omission issue [Unknown]
